FAERS Safety Report 8494822-8 (Version None)
Quarter: 2012Q3

REPORT INFORMATION
  Report Type: 
  Country: None (occurrence: None)
  Receive Date: 20120709
  Receipt Date: 20120702
  Transmission Date: 20120928
  Serious: Yes (Hospitalization, Disabling, Other)
  Sender: FDA-Public Use
  Company Number: US-MSD JAPAN-1203USA03304

PATIENT

DRUGS (4)
  1. FOSAMAX PLUS D [Suspect]
     Indication: OSTEOPOROSIS
     Dosage: 70 MG, QW
     Route: 048
     Dates: start: 20050401, end: 20080101
  2. FOSAMAX [Suspect]
     Indication: OSTEOPOROSIS
     Dosage: 70 MG, QW
     Route: 048
     Dates: start: 20000101, end: 20080101
  3. FOSAMAX [Suspect]
     Indication: OSTEOPENIA
  4. FOSAMAX [Suspect]
     Dosage: 70 MG, QW
     Route: 048
     Dates: start: 20080201, end: 20080101

REACTIONS (5)
  - EMOTIONAL DISTRESS [None]
  - INJURY [None]
  - STRESS FRACTURE [None]
  - ONYCHOMYCOSIS [None]
  - FEMUR FRACTURE [None]
